FAERS Safety Report 22139671 (Version 1)
Quarter: 2023Q1

REPORT INFORMATION
  Report Type: Report from Study
  Country: BG (occurrence: BG)
  Receive Date: 20230327
  Receipt Date: 20230327
  Transmission Date: 20230417
  Serious: Yes (Other)
  Sender: FDA-Public Use
  Company Number: BG-TAKEDA-2023TUS029574

PATIENT
  Age: 32 Year
  Sex: Female

DRUGS (1)
  1. VEDOLIZUMAB [Suspect]
     Active Substance: VEDOLIZUMAB
     Indication: Colitis ulcerative
     Dosage: 108 MILLIGRAM, Q2WEEKS
     Route: 058
     Dates: start: 20210827, end: 20230307

REACTIONS (2)
  - Colitis ulcerative [Unknown]
  - Acne cystic [Unknown]

NARRATIVE: CASE EVENT DATE: 20221101
